FAERS Safety Report 7273085-5 (Version None)
Quarter: 2011Q1

REPORT INFORMATION
  Report Type: 
  Country: None (occurrence: None)
  Receive Date: 20110203
  Receipt Date: 20101222
  Transmission Date: 20110831
  Serious: Yes (Other)
  Sender: FDA-Public Use
  Company Number: US-BAXTER-2010BH003715

PATIENT
  Age: 28 Year
  Sex: Female
  Weight: 79 kg

DRUGS (4)
  1. HEPARIN SODIUM INJECTION [Suspect]
     Indication: THROMBOSIS
     Route: 058
     Dates: start: 20071212, end: 20071219
  2. HEPARIN SODIUM 5,000 UNITS IN DEXTROSE 5% [Suspect]
     Indication: DEEP VEIN THROMBOSIS
     Route: 042
     Dates: start: 20071211, end: 20071212
  3. HEPARIN SODIUM 5,000 UNITS IN DEXTROSE 5% [Suspect]
     Route: 042
     Dates: start: 20071213, end: 20071218
  4. PRENATAL VITAMINS [Concomitant]
     Indication: PRODUCT USED FOR UNKNOWN INDICATION
     Route: 065

REACTIONS (8)
  - HYPOTENSION [None]
  - VOMITING [None]
  - DYSPNOEA [None]
  - HEART RATE DECREASED [None]
  - ANAEMIA [None]
  - PERITONEAL HAEMORRHAGE [None]
  - DYSARTHRIA [None]
  - ABDOMINAL PAIN UPPER [None]
